FAERS Safety Report 4742865-X (Version None)
Quarter: 2005Q3

REPORT INFORMATION
  Report Type: 
  Country: None (occurrence: None)
  Receive Date: 20050811
  Receipt Date: 20050411
  Transmission Date: 20060218
  Serious: Yes (Death, Other)
  Sender: FDA-Public Use
  Company Number: 2005AP02205

PATIENT
  Age: 50 Year
  Sex: Male

DRUGS (5)
  1. MEROPEN [Suspect]
     Indication: PSEUDOMONAS INFECTION
     Route: 041
     Dates: start: 20050114, end: 20050117
  2. EBUTOL [Concomitant]
     Indication: ATYPICAL MYCOBACTERIAL INFECTION
     Route: 048
     Dates: start: 20041213
  3. CRAVIT [Concomitant]
     Indication: ATYPICAL MYCOBACTERIAL INFECTION
     Route: 048
     Dates: start: 20041213
  4. FLUCALIQ [Concomitant]
     Indication: MEDICAL DIET
     Route: 041
     Dates: start: 20050101
  5. BESTCALL [Concomitant]
     Indication: PNEUMONIA
     Route: 042
     Dates: start: 20050113, end: 20050114

REACTIONS (4)
  - BLOOD PRESSURE DECREASED [None]
  - CARDIAC ARREST [None]
  - INTERSTITIAL LUNG DISEASE [None]
  - LIVER DISORDER [None]
